FAERS Safety Report 7918762-5 (Version None)
Quarter: 2011Q4

REPORT INFORMATION
  Report Type: 
  Country: None (occurrence: None)
  Receive Date: 20111116
  Receipt Date: 20111107
  Transmission Date: 20120403
  Serious: Yes (Hospitalization)
  Sender: FDA-Public Use
  Company Number: AU-US-EMD SERONO, INC.-7091287

PATIENT
  Sex: Male

DRUGS (2)
  1. ACETAMINOPHEN [Concomitant]
     Indication: ADVERSE DRUG REACTION
  2. REBIF [Suspect]
     Indication: PRODUCT USED FOR UNKNOWN INDICATION
     Dates: start: 20110615

REACTIONS (1)
  - VOMITING [None]
